FAERS Safety Report 20865437 (Version 2)
Quarter: 2022Q2

REPORT INFORMATION
  Report Type: Report from Study
  Country: US (occurrence: US)
  Receive Date: 20220524
  Receipt Date: 20220622
  Transmission Date: 20220721
  Serious: Yes (Other)
  Sender: FDA-Public Use
  Company Number: US-ABBVIE-22K-163-4406537-00

PATIENT
  Sex: Female

DRUGS (4)
  1. HUMIRA [Suspect]
     Active Substance: ADALIMUMAB
     Indication: Colitis ulcerative
     Route: 058
  2. MODERNA COVID-19 VACCINE [Suspect]
     Active Substance: ELASOMERAN
     Indication: COVID-19 immunisation
     Dosage: FIRST DOSE
     Route: 030
  3. MODERNA COVID-19 VACCINE [Suspect]
     Active Substance: ELASOMERAN
     Dosage: SECOND DOSE
     Route: 030
  4. MODERNA COVID-19 VACCINE [Suspect]
     Active Substance: ELASOMERAN
     Dosage: BOOSTER DOSE
     Route: 030

REACTIONS (10)
  - Polyp [Recovering/Resolving]
  - Feeling abnormal [Not Recovered/Not Resolved]
  - Proctitis [Not Recovered/Not Resolved]
  - Pseudopolyp [Unknown]
  - Abdominal discomfort [Unknown]
  - Arthralgia [Recovered/Resolved]
  - Back pain [Recovered/Resolved]
  - Pain [Recovered/Resolved]
  - Injection site pruritus [Recovered/Resolved]
  - Injection site bruising [Recovered/Resolved]

NARRATIVE: CASE EVENT DATE: 20220101
